FAERS Safety Report 8987011 (Version 1)
Quarter: 2012Q4

REPORT INFORMATION
  Report Type: 
  Country: FR (occurrence: FR)
  Receive Date: 20121227
  Receipt Date: 20121227
  Transmission Date: 20130627
  Serious: Yes (Hospitalization, Other)
  Sender: FDA-Public Use
  Company Number: FR-BIOGENIDEC-2012BI062006

PATIENT
  Age: 38 Year
  Sex: Female

DRUGS (2)
  1. TYSABRI [Suspect]
     Indication: MULTIPLE SCLEROSIS
     Route: 042
     Dates: start: 20120705
  2. PREVISCAN [Concomitant]
     Indication: PULMONARY EMBOLISM
     Dates: start: 201206, end: 20120926

REACTIONS (1)
  - Cholangitis [Unknown]
